APPROVED DRUG PRODUCT: PEPCID
Active Ingredient: FAMOTIDINE
Strength: 40MG **Federal Register determination that product was not discontinued or withdrawn for safety or effectiveness reasons**
Dosage Form/Route: TABLET;ORAL
Application: N019462 | Product #002
Applicant: BAUSCH HEALTH US LLC
Approved: Oct 15, 1986 | RLD: Yes | RS: No | Type: DISCN